FAERS Safety Report 17374102 (Version 1)
Quarter: 2020Q1

REPORT INFORMATION
  Report Type: Report from Study
  Country: CA (occurrence: CA)
  Receive Date: 20200205
  Receipt Date: 20200205
  Transmission Date: 20200409
  Serious: Yes (Other)
  Sender: FDA-Public Use
  Company Number: CA-JNJFOC-20200144933

PATIENT
  Sex: Female
  Weight: 76 kg

DRUGS (1)
  1. STELARA [Suspect]
     Active Substance: USTEKINUMAB
     Indication: COLITIS ULCERATIVE
     Route: 058
     Dates: start: 20180502

REACTIONS (3)
  - Headache [Unknown]
  - Lower respiratory tract infection [Recovering/Resolving]
  - Arthralgia [Not Recovered/Not Resolved]
